FAERS Safety Report 4824158-5 (Version None)
Quarter: 2005Q4

REPORT INFORMATION
  Report Type: 
  Country: None (occurrence: None)
  Receive Date: 20051108
  Receipt Date: 20051101
  Transmission Date: 20060501
  Serious: Yes (Other)
  Sender: FDA-Public Use
  Company Number: 200513374BCC

PATIENT
  Age: 26 Year
  Sex: Female
  Weight: 69.8539 kg

DRUGS (1)
  1. MIDOL [Suspect]
     Indication: DYSMENORRHOEA
     Dosage: 1000 MG, ONCE, ORAL
     Route: 048
     Dates: start: 20050819

REACTIONS (5)
  - DIZZINESS [None]
  - DRY MOUTH [None]
  - DYSPNOEA [None]
  - PALPITATIONS [None]
  - TREMOR [None]
